FAERS Safety Report 8596081-4 (Version None)
Quarter: 2012Q3

REPORT INFORMATION
  Report Type: 
  Country: None (occurrence: None)
  Receive Date: 20120807
  Receipt Date: 20120807
  Transmission Date: 20120928
  Serious: Yes (Other)
  Sender: FDA-Public Use
  Company Number: None

PATIENT
  Age: 68 Year
  Sex: Female
  Weight: 54.8852 kg

DRUGS (1)
  1. RECLAST [Suspect]
     Indication: OSTEOPOROSIS
     Dosage: 1 ONCE YEARLY IV
     Route: 042
     Dates: start: 20111231

REACTIONS (4)
  - DRUG EFFECT DECREASED [None]
  - MYALGIA [None]
  - MUSCLE FATIGUE [None]
  - RASH [None]
